FAERS Safety Report 18422199 (Version 1)
Quarter: 2020Q4

REPORT INFORMATION
  Report Type: Other
  Country: US (occurrence: US)
  Receive Date: 20201023
  Receipt Date: 20201023
  Transmission Date: 20210114
  Serious: Yes (Other)
  Sender: FDA-Public Use
  Company Number: US-ROCHE-2698242

PATIENT

DRUGS (2)
  1. VALGANCICLOVIR. [Suspect]
     Active Substance: VALGANCICLOVIR
     Indication: PROSTATE CANCER
     Dosage: FOR 2 WEEKS
     Route: 048
  2. FLUOROURACIL. [Suspect]
     Active Substance: FLUOROURACIL
     Indication: PROSTATE CANCER
     Route: 065

REACTIONS (11)
  - Lymphopenia [Unknown]
  - Deep vein thrombosis [Unknown]
  - Micturition urgency [Unknown]
  - Pneumonitis [Unknown]
  - Pulmonary embolism [Unknown]
  - Bundle branch block right [Unknown]
  - Dysuria [Unknown]
  - Neutropenia [Unknown]
  - Hyperglycaemia [Unknown]
  - Hypermagnesaemia [Unknown]
  - Hypophosphataemia [Unknown]
